FAERS Safety Report 8275417-8 (Version None)
Quarter: 2012Q2

REPORT INFORMATION
  Report Type: 
  Country: None (occurrence: None)
  Receive Date: 20120411
  Receipt Date: 20120328
  Transmission Date: 20120825
  Serious: Yes (Other)
  Sender: FDA-Public Use
  Company Number: PHHY2012JP020444

PATIENT
  Age: 30 Year
  Sex: Female

DRUGS (9)
  1. SANDIMMUNE [Suspect]
     Indication: STEM CELL TRANSPLANT
     Dosage: 140 MG, UNK
     Route: 041
     Dates: start: 20081010
  2. CYCLOPHOSPHAMIDE [Concomitant]
     Dosage: 750 MG/M2, FOR FOUR DAYS
  3. PREDNISOLONE [Concomitant]
     Indication: PROPHYLAXIS AGAINST GRAFT VERSUS HOST DISEASE
  4. ANTI-THYMOCYTE GLOBULIN EQUINE NOS [Concomitant]
     Dosage: 10 MG/KG, FOR FOUR DAYS
  5. FLUDARABINE PHOSPHATE [Concomitant]
     Dosage: 25 MG/M2, FOR  FOUR DAYS
  6. RADIATION THERAPY [Concomitant]
     Dosage: 2 GY - TWO COURSES
  7. PREDNISOLONE [Suspect]
     Dosage: 50 MG, UNK
     Dates: start: 20081027
  8. METHOTREXATE [Concomitant]
     Indication: PROPHYLAXIS AGAINST GRAFT VERSUS HOST DISEASE
  9. CIPROFLOXACIN [Suspect]
     Dosage: 600 MG, UNK
     Dates: start: 20081021, end: 20081029

REACTIONS (2)
  - ACUTE GRAFT VERSUS HOST DISEASE [None]
  - RETINAL HAEMORRHAGE [None]
